FAERS Safety Report 7640174-2 (Version None)
Quarter: 2011Q3

REPORT INFORMATION
  Report Type: 
  Country: None (occurrence: None)
  Receive Date: 20110728
  Receipt Date: 20110627
  Transmission Date: 20111222
  Serious: No
  Sender: FDA-Public Use
  Company Number: US-BAYER-2011-057771

PATIENT
  Age: 54 Year
  Sex: Female

DRUGS (6)
  1. ANTIHYPERTENSIVES [Concomitant]
  2. ASPIRIN [Concomitant]
  3. MULTI-VITAMIN [Concomitant]
  4. ALEVE (CAPLET) [Suspect]
     Indication: ARTHRITIS
     Dosage: 2 DF, QD
     Route: 048
     Dates: start: 20110301
  5. PREMARIN [Concomitant]
  6. LOVAZA [Concomitant]

REACTIONS (1)
  - ABDOMINAL DISCOMFORT [None]
